FAERS Safety Report 6448299-4 (Version None)
Quarter: 2009Q4

REPORT INFORMATION
  Report Type: 
  Country: None (occurrence: None)
  Receive Date: 20091120
  Receipt Date: 20091111
  Transmission Date: 20100525
  Serious: Yes (Hospitalization, Other)
  Sender: FDA-Public Use
  Company Number: PHHO2009DE13881

PATIENT
  Sex: Male

DRUGS (3)
  1. RAD 666 RAD+TAB [Suspect]
     Indication: RENAL TRANSPLANT
     Dosage: 4.6 MG
     Route: 048
     Dates: end: 20091009
  2. NEORAL [Suspect]
     Indication: RENAL TRANSPLANT
     Dosage: 100 MG
     Route: 048
  3. PREDNISONE [Suspect]
     Indication: RENAL TRANSPLANT
     Dosage: 5 MG
     Route: 048

REACTIONS (5)
  - ABASIA [None]
  - BONE DISORDER [None]
  - BONE MARROW OEDEMA [None]
  - OSTEONECROSIS [None]
  - PAIN IN EXTREMITY [None]
